FAERS Safety Report 10102394 (Version 2)
Quarter: 2014Q2

REPORT INFORMATION
  Report Type: Spontaneous
  Country: US (occurrence: US)
  Receive Date: 20140424
  Receipt Date: 20140424
  Transmission Date: 20141212
  Serious: Yes (Death, Hospitalization)
  Sender: FDA-Public Use
  Company Number: US-INCYTE CORPORATION-2014IN000629

PATIENT
  Age: 57 Year
  Sex: Male
  Weight: 53.06 kg

DRUGS (14)
  1. JAKAFI [Suspect]
     Indication: MYELOFIBROSIS
     Dosage: 5 MG, BID
     Route: 048
     Dates: start: 20140211, end: 20140309
  2. ZYLOPRIM [Concomitant]
  3. DIGOXIN [Concomitant]
  4. CARDIZEM                           /00489701/ [Concomitant]
  5. BARACLUDE [Concomitant]
  6. LEXAPRO [Concomitant]
  7. CLARITIN                           /00413701/ [Concomitant]
  8. MEDROL                             /00049601/ [Concomitant]
  9. METOPROLOL [Concomitant]
  10. ZOFRAN                             /00955301/ [Concomitant]
  11. OXYCODONE [Concomitant]
  12. COMPAZINE                          /00013302/ [Concomitant]
  13. ZANTAC [Concomitant]
  14. VALCYTE [Concomitant]

REACTIONS (1)
  - Pseudomonas infection [Fatal]
